FAERS Safety Report 8466141 (Version 3)
Quarter: 2012Q4

REPORT INFORMATION
  Report Type: Report from Study
  Country: US (occurrence: US)
  Receive Date: 20120319
  Receipt Date: 20120921
  Transmission Date: 20130627
  Serious: Yes (Hospitalization)
  Sender: FDA-Public Use
  Company Number: US-JNJFOC-20120306080

PATIENT
  Age: 15 Year
  Sex: Female
  Weight: 63.7 kg

DRUGS (41)
  1. REMICADE [Suspect]
     Indication: CROHN^S DISEASE
     Route: 042
     Dates: start: 20091030
  2. REMICADE [Suspect]
     Indication: CROHN^S DISEASE
     Route: 042
     Dates: start: 20090904
  3. REMICADE [Suspect]
     Indication: CROHN^S DISEASE
     Route: 042
     Dates: start: 20091223
  4. REMICADE [Suspect]
     Indication: CROHN^S DISEASE
     Route: 042
     Dates: start: 20100415
  5. REMICADE [Suspect]
     Indication: CROHN^S DISEASE
     Route: 042
     Dates: start: 20100621
  6. REMICADE [Suspect]
     Indication: CROHN^S DISEASE
     Route: 042
     Dates: start: 20100820
  7. REMICADE [Suspect]
     Indication: CROHN^S DISEASE
     Route: 042
     Dates: start: 20101010
  8. REMICADE [Suspect]
     Indication: CROHN^S DISEASE
     Route: 042
     Dates: start: 20101220
  9. REMICADE [Suspect]
     Indication: CROHN^S DISEASE
     Route: 042
     Dates: start: 20110120
  10. REMICADE [Suspect]
     Indication: CROHN^S DISEASE
     Route: 042
     Dates: start: 20110318
  11. REMICADE [Suspect]
     Indication: CROHN^S DISEASE
     Route: 042
     Dates: start: 20120131
  12. REMICADE [Suspect]
     Indication: CROHN^S DISEASE
     Route: 042
     Dates: start: 20120204
  13. REMICADE [Suspect]
     Indication: CROHN^S DISEASE
     Route: 042
     Dates: start: 20090709
  14. REMICADE [Suspect]
     Indication: CROHN^S DISEASE
     Route: 042
     Dates: start: 20071114
  15. TRAMADOL [Concomitant]
  16. CEFZIL [Concomitant]
  17. ZOFRAN [Concomitant]
  18. PRED FORTE [Concomitant]
  19. OMEPRAZOLE [Concomitant]
  20. CLOBETASOL [Concomitant]
  21. FLAGYL [Concomitant]
  22. AMITRIPTYLINE [Concomitant]
  23. FOLIC ACID [Concomitant]
  24. BACTROBAN [Concomitant]
     Route: 045
  25. FERROUS SULFATE [Concomitant]
  26. FLUOCINONIDE [Concomitant]
  27. VITAMIN D [Concomitant]
  28. LUXIQ [Concomitant]
  29. MONTELUKAST SODIUM [Concomitant]
  30. MULTIVITAMINS [Concomitant]
  31. OMEGA 3 FISH OIL [Concomitant]
  32. SACCHAROMYCES BOULARDII [Concomitant]
  33. SINGULAIR [Concomitant]
  34. METHOTREXATE [Concomitant]
  35. 5-ASA [Concomitant]
     Route: 048
  36. ALBUTEROL [Concomitant]
  37. LUXIQ [Concomitant]
  38. FLORASTOR [Concomitant]
  39. BACTROBAN [Concomitant]
     Route: 061
  40. PROBIOTICS [Concomitant]
  41. LIDEX [Concomitant]

REACTIONS (4)
  - Ileal stenosis [Recovered/Resolved with Sequelae]
  - Abdominal wall abscess [Recovered/Resolved]
  - Device related infection [Recovered/Resolved]
  - Crohn^s disease [Recovered/Resolved with Sequelae]
